FAERS Safety Report 10087240 (Version 1)
Quarter: 2014Q2

REPORT INFORMATION
  Report Type: Spontaneous
  Country: US (occurrence: US)
  Receive Date: 20140418
  Receipt Date: 20140418
  Transmission Date: 20141212
  Serious: Yes (Hospitalization)
  Sender: FDA-Public Use
  Company Number: CHPA2014US005414

PATIENT
  Age: 19 Year
  Sex: Female

DRUGS (2)
  1. PARACETAMOL [Suspect]
     Indication: DYSMENORRHOEA
     Dosage: 5 DF, EVERY HOUR FOR TWO DAYS
  2. PARACETAMOL [Suspect]
     Indication: OFF LABEL USE

REACTIONS (10)
  - Respiratory failure [Unknown]
  - Pancreatic pseudocyst [Recovering/Resolving]
  - Overdose [Unknown]
  - Acute hepatic failure [Recovered/Resolved]
  - Renal failure acute [Recovered/Resolved]
  - Pancreatitis acute [Recovered/Resolved]
  - Headache [Unknown]
  - Abdominal pain [Unknown]
  - Nausea [Unknown]
  - Vomiting [Unknown]
